FAERS Safety Report 20856509 (Version 2)
Quarter: 2022Q2

REPORT INFORMATION
  Report Type: Spontaneous
  Country: US (occurrence: US)
  Receive Date: 20220520
  Receipt Date: 20220604
  Transmission Date: 20220721
  Serious: No
  Sender: FDA-Public Use
  Company Number: US-SA-SAC20220513000275

PATIENT
  Age: 37 Year
  Sex: Female

DRUGS (1)
  1. DUPIXENT [Suspect]
     Active Substance: DUPILUMAB
     Dosage: 300 MG
     Route: 058
     Dates: start: 20211113

REACTIONS (5)
  - Headache [Unknown]
  - Migraine [Unknown]
  - Visual impairment [Unknown]
  - Vision blurred [Unknown]
  - Injection site pain [Unknown]

NARRATIVE: CASE EVENT DATE: 20211130
